FAERS Safety Report 9857017 (Version 2)
Quarter: 2014Q1

REPORT INFORMATION
  Report Type: Spontaneous
  Country: US (occurrence: US)
  Receive Date: 20140130
  Receipt Date: 20140226
  Transmission Date: 20141002
  Serious: Yes (Death, Hospitalization, Other)
  Sender: FDA-Public Use
  Company Number: US-MPIJNJ-2014MPI000285

PATIENT
  Age: 73 Year
  Sex: Male

DRUGS (2)
  1. VELCADE [Suspect]
     Indication: PLASMA CELL MYELOMA
     Dosage: 1 DF, 1/WEEK
     Route: 042
  2. VELCADE [Suspect]
     Dosage: 1 DF, 2/WEEK
     Route: 058

REACTIONS (3)
  - Death [Fatal]
  - Respiratory tract inflammation [Unknown]
  - Plasma cell myeloma [Unknown]
